FAERS Safety Report 12889469 (Version 1)
Quarter: 2016Q4

REPORT INFORMATION
  Report Type: Spontaneous
  Country: KR (occurrence: KR)
  Receive Date: 20161027
  Receipt Date: 20161027
  Transmission Date: 20170207
  Serious: Yes (Death, Other)
  Sender: FDA-Public Use
  Company Number: KR-JNJFOC-20161023691

PATIENT

DRUGS (5)
  1. CYCLOPHOSPHAMIDE. [Suspect]
     Active Substance: CYCLOPHOSPHAMIDE
     Indication: DIFFUSE LARGE B-CELL LYMPHOMA
     Dosage: ADVANCED DISEASE: 6 TO 8 CYCLES; LOCALIZED DISEASE: 3 TO 4 CYCLES
     Route: 065
  2. RITUXIMAB [Suspect]
     Active Substance: RITUXIMAB
     Indication: DIFFUSE LARGE B-CELL LYMPHOMA
     Dosage: ADVANCED DISEASE: 6 TO 8 CYCLES; LOCALIZED DISEASE: 3 TO 4 CYCLES
     Route: 065
  3. VINCRISTINE [Suspect]
     Active Substance: VINCRISTINE
     Indication: DIFFUSE LARGE B-CELL LYMPHOMA
     Dosage: ADVANCED DISEASE: 6 TO 8 CYCLES; LOCALIZED DISEASE: 3 TO 4 CYCLES
     Route: 065
  4. PREDNISONE. [Suspect]
     Active Substance: PREDNISONE
     Indication: DIFFUSE LARGE B-CELL LYMPHOMA
     Dosage: ADVANCED DISEASE: 6 TO 8 CYCLES; LOCALIZED DISEASE: 3 TO 4 CYCLES
     Route: 065
  5. ADRIAMYCIN [Suspect]
     Active Substance: DOXORUBICIN HYDROCHLORIDE
     Indication: DIFFUSE LARGE B-CELL LYMPHOMA
     Dosage: ADVANCED DISEASE: 6 TO 8 CYCLES; LOCALIZED DISEASE: 3 TO 4 CYCLES
     Route: 065

REACTIONS (5)
  - Infection [Fatal]
  - Product use issue [Unknown]
  - Sepsis [Fatal]
  - Off label use [Unknown]
  - Pneumonia [Fatal]
